FAERS Safety Report 5860604-6 (Version None)
Quarter: 2008Q3

REPORT INFORMATION
  Report Type: 
  Country: None (occurrence: None)
  Receive Date: 20080827
  Receipt Date: 20071030
  Transmission Date: 20090109
  Serious: No
  Sender: FDA-Public Use
  Company Number: US-ABBOTT-07P-163-0422841-00

PATIENT
  Sex: Male

DRUGS (1)
  1. COATED PDS [Suspect]
     Indication: DRUG USE FOR UNKNOWN INDICATION
     Dosage: ONE TABLET
     Route: 048

REACTIONS (3)
  - BURNING SENSATION [None]
  - ERYTHEMA [None]
  - RASH PAPULAR [None]
